FAERS Safety Report 14138797 (Version 2)
Quarter: 2018Q3

REPORT INFORMATION
  Report Type: Report from Study
  Country: US (occurrence: US)
  Receive Date: 20171027
  Receipt Date: 20180814
  Transmission Date: 20181010
  Serious: No
  Sender: FDA-Public Use
  Company Number: US-ACTELION-A-US2017-156196

PATIENT
  Age: 49 Year
  Sex: Male

DRUGS (7)
  1. IBUPROFEN. [Concomitant]
     Active Substance: IBUPROFEN
     Route: 048
  2. SPIRONOLACTONE. [Concomitant]
     Active Substance: SPIRONOLACTONE
     Indication: HYPERVOLAEMIA
     Dosage: 25 MG, QD
     Route: 048
     Dates: start: 201507
  3. SILDENAFIL CITRATE. [Concomitant]
     Active Substance: SILDENAFIL CITRATE
     Indication: PULMONARY HYPERTENSION
     Dosage: 60 MG, QD
     Route: 048
     Dates: start: 201506
  4. LORATADIN [Concomitant]
     Active Substance: LORATADINE
     Dosage: 10 MG, QD
     Route: 048
     Dates: start: 2015
  5. TORSEMIDE. [Concomitant]
     Active Substance: TORSEMIDE
     Indication: HYPERVOLAEMIA
     Dosage: 40 MG, QD
     Route: 048
     Dates: start: 201507
  6. OPSUMIT [Suspect]
     Active Substance: MACITENTAN
     Indication: PULMONARY ARTERIAL HYPERTENSION
     Dosage: 10 MG, QD
     Route: 048
     Dates: start: 20151126
  7. FLUTICASONE PROPIONATE. [Concomitant]
     Active Substance: FLUTICASONE PROPIONATE
     Dosage: 50MCG/ACT, 2 SPRAYS IN EACH NOSTRIL, QD
     Route: 045
     Dates: start: 201602

REACTIONS (1)
  - White blood cell count decreased [Unknown]

NARRATIVE: CASE EVENT DATE: 20160629
